FAERS Safety Report 8366223-4 (Version None)
Quarter: 2012Q2

REPORT INFORMATION
  Report Type: 
  Country: None (occurrence: None)
  Receive Date: 20120517
  Receipt Date: 20120510
  Transmission Date: 20120825
  Serious: Yes (Other)
  Sender: FDA-Public Use
  Company Number: PHEH2012US004568

PATIENT
  Sex: Male

DRUGS (16)
  1. PREDNISONE TAB [Concomitant]
     Indication: HYPERSENSITIVITY
     Dosage: 40 MG, UNK
  2. NOVOLIN 70/30 [Concomitant]
     Indication: DIABETES MELLITUS
  3. LUMIGAN [Concomitant]
  4. ASPIRIN [Concomitant]
     Indication: CARDIAC DISORDER
     Dosage: 81 MG, QD
     Route: 048
  5. SANDIMMUNE [Suspect]
     Indication: RENAL TRANSPLANT
     Dosage: 100 MG, BID
     Route: 048
     Dates: start: 20120112
  6. FOLIC ACID [Concomitant]
     Dosage: 1 MG, QD
     Route: 048
  7. PROCHLORPERAZINE MALEATE [Concomitant]
     Indication: NAUSEA
     Dosage: 10 MG, PRN
  8. COSOPT [Concomitant]
     Indication: INTRAOCULAR PRESSURE TEST
  9. NITROGLICERINA [Concomitant]
     Indication: ANGINA PECTORIS
     Dosage: 0.4 MG, PRN
  10. NOVOLOG [Concomitant]
     Indication: DIABETES MELLITUS
     Dosage: 10 U, UNK
  11. ONDANSETRON [Concomitant]
     Indication: NAUSEA
     Dosage: 8 MG, UNK
  12. ALLOPURINOL [Concomitant]
     Indication: GOUT
     Dosage: 100 MG, QD
  13. DILTIAZEM HYDROCHLORIDE [Concomitant]
     Indication: CARDIAC DISORDER
  14. VITAMIN D [Concomitant]
     Dosage: 5000 U, UNK
     Route: 048
  15. FUROSEMIDE [Concomitant]
     Dosage: 40 MG, QD
     Route: 048
  16. ISOSORBIDE MONONITRATE [Concomitant]
     Indication: CARDIAC DISORDER
     Route: 048

REACTIONS (4)
  - MELANOCYTIC NAEVUS [None]
  - SKIN CANCER [None]
  - HYPOACUSIS [None]
  - MESOTHELIOMA MALIGNANT [None]
